FAERS Safety Report 4802933-0 (Version None)
Quarter: 2005Q4

REPORT INFORMATION
  Report Type: 
  Country: None (occurrence: None)
  Receive Date: 20051019
  Receipt Date: 20051012
  Transmission Date: 20060501
  Serious: Yes (Hospitalization)
  Sender: FDA-Public Use
  Company Number: US-BRACCO-BDI-007636

PATIENT
  Age: 69 Year
  Sex: Female

DRUGS (5)
  1. MDP-SQUIBB [Suspect]
     Indication: BONE SCAN
     Route: 042
     Dates: start: 20050919, end: 20050919
  2. PREMARIN                           /00073001/ [Concomitant]
     Route: 050
  3. NEXIUM [Concomitant]
     Route: 050
  4. GEMFIBROZIL [Concomitant]
     Route: 050
  5. SYNTHROID [Concomitant]
     Route: 050

REACTIONS (6)
  - AMNESIA [None]
  - BLOOD PRESSURE ABNORMAL [None]
  - DIZZINESS [None]
  - LOSS OF CONSCIOUSNESS [None]
  - NAUSEA [None]
  - VOMITING PROJECTILE [None]
